FAERS Safety Report 5741032-0 (Version None)
Quarter: 2008Q2

REPORT INFORMATION
  Report Type: 
  Country: None (occurrence: None)
  Receive Date: 20080516
  Receipt Date: 20080508
  Transmission Date: 20081010
  Serious: Yes (Hospitalization)
  Sender: FDA-Public Use
  Company Number: US-GENENTECH-260798

PATIENT
  Age: 57 Year
  Sex: Male

DRUGS (3)
  1. BEVACIZUMAB [Suspect]
     Indication: NASOPHARYNGEAL CANCER
     Dosage: 15 MG/KG, UNK
     Route: 042
     Dates: start: 20080410
  2. FLUOROURACIL [Concomitant]
     Indication: NASOPHARYNGEAL CANCER
     Dosage: 1000 MG/M2, UNK
     Route: 042
     Dates: start: 20080410, end: 20080413
  3. CISPLATIN [Concomitant]
     Indication: NASOPHARYNGEAL CANCER
     Dosage: 80 MG/M2, UNK
     Route: 042
     Dates: start: 20080410

REACTIONS (1)
  - PYREXIA [None]
